FAERS Safety Report 9769360 (Version 1)
Quarter: 2013Q4

REPORT INFORMATION
  Report Type: Spontaneous
  Country: US (occurrence: None)
  Receive Date: 20131217
  Receipt Date: 20131217
  Transmission Date: 20140711
  Serious: No
  Sender: FDA-Public Use
  Company Number: None

PATIENT
  Age: 49 Year
  Sex: Male
  Weight: 104.33 kg

DRUGS (11)
  1. LATUDA [Suspect]
     Indication: SCHIZOPHRENIA
     Dosage: 2 PILLS AT BEDTIME; 1/2 PILL IN MORNING
     Route: 048
     Dates: start: 20120525
  2. SEROQUEL [Concomitant]
  3. LORAZEPAM [Concomitant]
  4. ARTANE [Concomitant]
  5. CHONDROITIN GLUCOSE AMINE SULFATE [Concomitant]
  6. CHEWABLE VIT. C [Concomitant]
  7. MENTHOL TEAS IE [Concomitant]
  8. MINT [Concomitant]
  9. SPEARMINT [Concomitant]
  10. PEPPERMINT [Concomitant]
  11. FLAX SEED FLOUR [Concomitant]

REACTIONS (3)
  - Clonus [None]
  - Tardive dyskinesia [None]
  - Grimacing [None]
